FAERS Safety Report 5875960-2 (Version None)
Quarter: 2008Q3

REPORT INFORMATION
  Report Type: 
  Country: None (occurrence: None)
  Receive Date: 20080910
  Receipt Date: 20080827
  Transmission Date: 20090109
  Serious: Yes (Other)
  Sender: FDA-Public Use
  Company Number: KR-PURDUE-MAG_2008_0000716

PATIENT
  Age: 52 Year
  Sex: Male

DRUGS (12)
  1. MORPHINE SULFATE CR TABLET 30 MG [Suspect]
     Indication: ANALGESIA
     Dosage: 30 MG, DAILY
     Route: 048
     Dates: start: 20060825
  2. FENTANYL [Concomitant]
     Indication: DRUG USE FOR UNKNOWN INDICATION
     Dosage: 100 MCG, DAILY
     Route: 061
     Dates: start: 20060902, end: 20060917
  3. KETOPROFEN [Concomitant]
     Indication: DRUG USE FOR UNKNOWN INDICATION
     Dosage: 30 MG, DAILY
     Route: 061
     Dates: start: 20060825, end: 20060904
  4. CALCIUM CARBONATE [Concomitant]
     Indication: DRUG USE FOR UNKNOWN INDICATION
     Dosage: 1000 MG, TID
     Route: 048
     Dates: start: 20060829, end: 20060901
  5. FAMOTIDINE [Concomitant]
     Indication: DRUG USE FOR UNKNOWN INDICATION
     Dosage: 20 MG, BID
     Route: 048
     Dates: start: 20060825, end: 20060901
  6. MEGACE [Concomitant]
     Indication: DRUG USE FOR UNKNOWN INDICATION
     Dosage: 40 MG, DAILY
     Route: 048
     Dates: start: 20060825, end: 20060901
  7. DOMPERIDONE [Concomitant]
     Indication: DRUG USE FOR UNKNOWN INDICATION
     Dosage: 12.72 MG, TID
     Route: 048
     Dates: start: 20060901, end: 20060903
  8. LOPERAMIDE HCL [Concomitant]
     Indication: DRUG USE FOR UNKNOWN INDICATION
     Dosage: 2 MG, TID
     Route: 048
     Dates: start: 20060901, end: 20060904
  9. CALCIUM GLUCONATE [Concomitant]
     Indication: DRUG USE FOR UNKNOWN INDICATION
     Dosage: 20 ML, DAILY
     Route: 042
     Dates: start: 20060901, end: 20060908
  10. BISPHOSPHONATES [Concomitant]
     Indication: DRUG USE FOR UNKNOWN INDICATION
     Dosage: 15 MG, UNK
     Route: 042
     Dates: start: 20060902, end: 20060905
  11. METOCLOPRAMIDE [Concomitant]
     Indication: DRUG USE FOR UNKNOWN INDICATION
     Dosage: 10 MG, DAILY
     Route: 042
     Dates: start: 20060902, end: 20060902
  12. MORPHINE HCL ELIXIR [Suspect]
     Dosage: 10 MG, DAILY
     Route: 042
     Dates: start: 20060904, end: 20060914

REACTIONS (2)
  - DELIRIUM [None]
  - HAEMATOCHEZIA [None]
